FAERS Safety Report 10097304 (Version 3)
Quarter: 2014Q2

REPORT INFORMATION
  Report Type: Report from Study
  Country: IT (occurrence: IT)
  Receive Date: 20140423
  Receipt Date: 20140605
  Transmission Date: 20141212
  Serious: Yes (Death, Hospitalization, Other)
  Sender: FDA-Public Use
  Company Number: IT-CELGENEUS-083-C4047-14020581

PATIENT
  Age: 69 Year
  Sex: Male
  Weight: 70 kg

DRUGS (9)
  1. CC-4047 [Suspect]
     Indication: PLASMA CELL MYELOMA
     Dosage: 4 MILLIGRAM
     Route: 048
     Dates: start: 20131219, end: 20140115
  2. CC-4047 [Suspect]
     Dosage: 4 MILLIGRAM
     Route: 048
     Dates: start: 20140116, end: 20140130
  3. DEXAMETHASONE [Suspect]
     Indication: PLASMA CELL MYELOMA
     Dosage: 40 MILLIGRAM
     Route: 048
     Dates: start: 20131219, end: 20140115
  4. DEXAMETHASONE [Suspect]
     Dosage: 40 MILLIGRAM
     Route: 048
     Dates: start: 20140116, end: 20140130
  5. DEXAMETHASONE [Suspect]
     Route: 048
     Dates: start: 20140207, end: 20140210
  6. CLEXANE [Concomitant]
     Indication: PROPHYLAXIS
     Route: 065
     Dates: start: 20131219
  7. AUGMENTIN [Concomitant]
     Indication: PYREXIA
     Dosage: 2000 MILLIGRAM
     Route: 048
     Dates: start: 20140118, end: 20140130
  8. MYELOSTIM [Concomitant]
     Indication: NEUTROPENIA
     Dosage: VIAL
     Route: 058
     Dates: start: 20140107, end: 20140110
  9. MYELOSTIM [Concomitant]
     Dosage: VIAL
     Route: 058
     Dates: start: 20140115, end: 20140115

REACTIONS (4)
  - Neutropenia [Fatal]
  - Leukopenia [Not Recovered/Not Resolved]
  - Thrombocytopenia [Not Recovered/Not Resolved]
  - Pyrexia [Not Recovered/Not Resolved]
